FAERS Safety Report 8761365 (Version 1)
Quarter: 2012Q4

REPORT INFORMATION
  Report Type: 
  Country: US (occurrence: US)
  Receive Date: 20120828
  Receipt Date: 20120828
  Transmission Date: 20130627
  Serious: Yes (Other)
  Sender: FDA-Public Use
  Company Number: US-PFIZER INC-2012206281

PATIENT
  Age: 51 Year
  Sex: Male

DRUGS (2)
  1. METHIMAZOLE [Suspect]
     Indication: BASEDOW^S DISEASE
     Dosage: 3x/day
  2. METHIMAZOLE [Suspect]
     Dosage: 2x/day

REACTIONS (1)
  - Polyarthritis [Recovered/Resolved]
